FAERS Safety Report 11401185 (Version 4)
Quarter: 2015Q4

REPORT INFORMATION
  Report Type: Spontaneous
  Country: US (occurrence: US)
  Receive Date: 20150820
  Receipt Date: 20151002
  Transmission Date: 20160304
  Serious: Yes (Other)
  Sender: FDA-Public Use
  Company Number: US-GLAXOSMITHKLINE-US2015GSK104904

PATIENT
  Age: 68 Year
  Sex: Female
  Weight: 53.97 kg

DRUGS (2)
  1. TRADJENTA [Concomitant]
     Active Substance: LINAGLIPTIN
  2. VOTRIENT [Suspect]
     Active Substance: PAZOPANIB HYDROCHLORIDE
     Indication: RENAL CELL CARCINOMA
     Dosage: 600 MG, U
     Route: 048
     Dates: start: 20150302, end: 20150717

REACTIONS (6)
  - Pancreatitis [Recovering/Resolving]
  - Adverse drug reaction [Recovering/Resolving]
  - Biliary dilatation [Unknown]
  - Physical product label issue [Unknown]
  - Pancreatic duct dilatation [Unknown]
  - Abdominal pain [Recovering/Resolving]

NARRATIVE: CASE EVENT DATE: 20150622
